FAERS Safety Report 5401512-4 (Version None)
Quarter: 2007Q3

REPORT INFORMATION
  Report Type: 
  Country: None (occurrence: None)
  Receive Date: 20070731
  Receipt Date: 20070723
  Transmission Date: 20080115
  Serious: Yes (Death)
  Sender: FDA-Public Use
  Company Number: JP-ROCHE-505799

PATIENT
  Age: 70 Year
  Sex: Male

DRUGS (56)
  1. PERDIPINE [Suspect]
     Indication: HYPERTENSION
     Dosage: DAILY DOSE REPORTED: INCREASED OR DECREASED BASED ON BLOOD PRESSURE, ON AN AS NEEDED BASIS.
     Route: 041
     Dates: start: 20060824, end: 20060824
  2. NAPROXEN [Suspect]
     Indication: PYREXIA
     Route: 048
     Dates: start: 20060920, end: 20060926
  3. ROHYPNOL [Suspect]
     Route: 048
     Dates: start: 20060913, end: 20060915
  4. ROHYPNOL [Suspect]
     Route: 048
     Dates: start: 20060918, end: 20060919
  5. ROHYPNOL [Suspect]
     Route: 048
     Dates: start: 20060921, end: 20060921
  6. ROHYPNOL [Suspect]
     Route: 048
     Dates: start: 20060923, end: 20060926
  7. CERCINE [Suspect]
     Indication: CONVULSION PROPHYLAXIS
     Route: 048
     Dates: start: 20060924, end: 20060926
  8. MYSLEE [Suspect]
     Route: 048
     Dates: start: 20060822, end: 20060822
  9. MYSLEE [Suspect]
     Route: 048
     Dates: start: 20060831, end: 20060831
  10. MYSLEE [Suspect]
     Route: 048
     Dates: start: 20060923, end: 20060923
  11. SENNOSIDE [Suspect]
     Indication: CONSTIPATION
     Route: 048
     Dates: start: 20060822, end: 20060822
  12. HUMULIN 70/30 [Suspect]
     Indication: HYPERGLYCAEMIA
     Route: 041
     Dates: start: 20060823, end: 20060824
  13. LANSOPRAZOLE [Suspect]
     Indication: GASTRIC ULCER
     Route: 048
     Dates: start: 20060824, end: 20060824
  14. LANSOPRAZOLE [Suspect]
     Route: 048
     Dates: start: 20060906, end: 20060929
  15. MOBIC [Suspect]
     Route: 048
     Dates: start: 20060824, end: 20060824
  16. ALBUMIN (HUMAN) [Suspect]
     Route: 041
     Dates: start: 20060824, end: 20060824
  17. ROPIVACAINE [Suspect]
     Dosage: DRUG REPORTED AS ANAPEINE.
     Route: 041
     Dates: start: 20060824, end: 20060826
  18. OMEPRAZOLE [Suspect]
     Route: 041
     Dates: start: 20060824, end: 20060830
  19. PANSPORIN [Suspect]
     Indication: INFECTION PROPHYLAXIS
     Route: 041
     Dates: start: 20060824, end: 20060826
  20. CATACLOT [Suspect]
     Indication: CEREBRAL INFARCTION
     Route: 041
     Dates: start: 20060824, end: 20060824
  21. MULTIVITAMIN ADDITIVE [Suspect]
     Indication: VITAMIN SUPPLEMENTATION
     Dosage: DAILY DOSE REPORTED AS 1 VIAL.
     Route: 041
     Dates: start: 20060824, end: 20060830
  22. NOVO-HEPARIN [Suspect]
     Indication: DRUG USE FOR UNKNOWN INDICATION
     Route: 041
     Dates: start: 20060824, end: 20060827
  23. RADICUT [Suspect]
     Indication: CEREBRAL INFARCTION
     Route: 041
     Dates: start: 20060824, end: 20060903
  24. BISOLVON [Suspect]
     Dosage: DAILY DOSE REPORTED: ON AN AS NEEDED BASIS.
     Route: 041
     Dates: start: 20060824, end: 20060824
  25. BISOLVON [Suspect]
     Dosage: DAILY DOSE REPORTED: ON AN AS NEEDED BASIS.
     Route: 041
     Dates: start: 20060829, end: 20060904
  26. AMINO ACID INJ [Suspect]
     Indication: NUTRITIONAL SUPPORT
     Route: 041
     Dates: start: 20060824, end: 20060825
  27. VOLTAREN [Suspect]
     Route: 054
     Dates: start: 20060824, end: 20060824
  28. VOLTAREN [Suspect]
     Route: 054
     Dates: start: 20060904, end: 20060923
  29. VOLTAREN [Suspect]
     Route: 054
     Dates: start: 20060917, end: 20060917
  30. VOLTAREN [Suspect]
     Route: 054
     Dates: start: 20060920, end: 20060922
  31. AMINO ACID INJ [Suspect]
     Route: 041
     Dates: start: 20060825, end: 20060830
  32. WAKOBITAL [Suspect]
     Indication: CONVULSION PROPHYLAXIS
     Route: 054
     Dates: start: 20060825, end: 20060828
  33. PHENOBARBITAL TAB [Suspect]
     Indication: CONVULSION PROPHYLAXIS
     Route: 048
     Dates: start: 20060828, end: 20060923
  34. MAGIUM (MAGNESIUM OXIDE) [Suspect]
     Indication: CONSTIPATION
     Dosage: DRUG REPORTED AS MAGMITT.
     Route: 048
     Dates: start: 20060829, end: 20060926
  35. ASPIRIN [Suspect]
     Indication: PROPHYLAXIS
     Route: 048
     Dates: start: 20060830, end: 20060930
  36. NEO-MINOPHAGEN C [Suspect]
     Route: 041
     Dates: start: 20060901, end: 20060911
  37. NEO-MINOPHAGEN C [Suspect]
     Route: 041
     Dates: start: 20060925, end: 20060927
  38. NEO-MINOPHAGEN C [Suspect]
     Route: 041
     Dates: start: 20060929, end: 20061012
  39. LAXOBERON [Suspect]
     Indication: CONSTIPATION
     Dosage: DAILY DOSE REPORTED: ADEQUATE DOSE AS NEEDED.
     Route: 048
     Dates: start: 20060902
  40. UBRETID [Suspect]
     Indication: NEUROGENIC BLADDER
     Route: 048
     Dates: start: 20060908, end: 20060929
  41. SPELEAR [Suspect]
     Route: 048
     Dates: start: 20060914, end: 20060924
  42. KETOPROFEN [Suspect]
     Route: 048
     Dates: start: 20060917
  43. FLUMARIN [Suspect]
     Indication: INFECTION
     Route: 041
     Dates: start: 20060917, end: 20060917
  44. LOXONIN [Suspect]
     Route: 048
     Dates: start: 20060918, end: 20060920
  45. LOXONIN [Suspect]
     Route: 048
     Dates: start: 20060923, end: 20060924
  46. RINDERON [Suspect]
     Dosage: DAILY DOSE REPORTED: ADEQUATE DOSE AS NEEDED. DRUG REPORTED AS RINDERON-VG
     Route: 061
     Dates: start: 20060918
  47. FINIBAX [Suspect]
     Indication: INFECTION
     Route: 041
     Dates: start: 20060919, end: 20060920
  48. AMOBAN [Suspect]
     Route: 048
     Dates: start: 20060920, end: 20060920
  49. AMOBAN [Suspect]
     Route: 048
     Dates: start: 20060922, end: 20060923
  50. AMOBAN [Suspect]
     Route: 048
     Dates: start: 20060925, end: 20060925
  51. SOLU-MEDROL [Suspect]
     Route: 041
     Dates: start: 20060920, end: 20060921
  52. PAZUFLOXACIN MESILATE [Suspect]
     Indication: INFECTION
     Dosage: DRUG REPORTED AS PASIL.
     Route: 041
     Dates: start: 20060920, end: 20060920
  53. TEGRETOL [Suspect]
     Route: 048
     Dates: start: 20060922, end: 20060923
  54. POLARAMINE [Suspect]
     Route: 048
     Dates: start: 20060923, end: 20060923
  55. SELBEX [Suspect]
     Indication: GASTRITIS
     Route: 048
     Dates: start: 20060924, end: 20060924
  56. AMINOFLUID [Suspect]
     Indication: FLUID REPLACEMENT
     Route: 041
     Dates: start: 20060925, end: 20060926

REACTIONS (1)
  - STEVENS-JOHNSON SYNDROME [None]
